FAERS Safety Report 24538700 (Version 2)
Quarter: 2024Q4

REPORT INFORMATION
  Report Type: Spontaneous
  Country: US (occurrence: US)
  Receive Date: 20241023
  Receipt Date: 20241028
  Transmission Date: 20250115
  Serious: No
  Sender: BIOGEN
  Company Number: US-BIOGEN-2023BI01220569

PATIENT
  Sex: Female

DRUGS (4)
  1. VUMERITY [Suspect]
     Active Substance: DIROXIMEL FUMARATE
     Indication: Multiple sclerosis
     Dosage: VUMERITY 231MG CAPSULE, TAKE ONE CAPSULE, 2 TIMES AS DAY FOR 7 DAYS
     Route: 050
     Dates: start: 202307
  2. VUMERITY [Suspect]
     Active Substance: DIROXIMEL FUMARATE
     Dosage: THEN TAKE 2 CAPSULES BY MOUTH, TWICE DAILY THEREAFTER
     Route: 050
     Dates: start: 20230717
  3. ARMODAFINIL [Concomitant]
     Active Substance: ARMODAFINIL
     Route: 050
  4. VITAMIN D [Concomitant]
     Active Substance: VITAMIN D NOS
     Route: 050

REACTIONS (2)
  - Pain [Unknown]
  - Flushing [Unknown]

NARRATIVE: CASE EVENT DATE: 20230101
